FAERS Safety Report 7503711-4 (Version None)
Quarter: 2011Q2

REPORT INFORMATION
  Report Type: 
  Country: None (occurrence: None)
  Receive Date: 20110525
  Receipt Date: 20110516
  Transmission Date: 20111010
  Serious: Yes (Death, Hospitalization, Other)
  Sender: FDA-Public Use
  Company Number: DE-BAYER-2011-016280

PATIENT
  Age: 76 Year
  Sex: Male
  Weight: 83 kg

DRUGS (3)
  1. AVELOX [Suspect]
     Indication: PNEUMONIA
     Dosage: UNK
     Route: 048
     Dates: start: 20101120, end: 20101124
  2. PRAVASTATIN [Concomitant]
  3. ALLOPURINOL [Concomitant]

REACTIONS (4)
  - DYSPNOEA [None]
  - ARRHYTHMIA [None]
  - VENTRICULAR FIBRILLATION [None]
  - SUDDEN CARDIAC DEATH [None]
